FAERS Safety Report 23306985 (Version 1)
Quarter: 2023Q4

REPORT INFORMATION
  Report Type: Spontaneous
  Country: US (occurrence: US)
  Receive Date: 20231218
  Receipt Date: 20231218
  Transmission Date: 20240110
  Serious: No
  Sender: FDA-Public Use
  Company Number: US-RECKITT BENCKISER HEALTHCARE INT LIMITED-RB-082799-2023

PATIENT
  Age: 4 Year
  Sex: Female

DRUGS (2)
  1. DELSYM NO MESS VAPOR ROLL ON [Suspect]
     Active Substance: CAMPHOR (NATURAL)\EUCALYPTUS OIL\MENTHOL
     Indication: Dyspnoea
     Dosage: UNKNOWN
     Route: 065
     Dates: end: 20230123
  2. DELSYM NO MESS VAPOR ROLL ON [Suspect]
     Active Substance: CAMPHOR (NATURAL)\EUCALYPTUS OIL\MENTHOL
     Indication: Illness

REACTIONS (2)
  - Product use issue [Unknown]
  - Drug effective for unapproved indication [Unknown]
